FAERS Safety Report 10019854 (Version 1)
Quarter: 2014Q1

REPORT INFORMATION
  Report Type: Spontaneous
  Country: US (occurrence: US)
  Receive Date: 20140318
  Receipt Date: 20140318
  Transmission Date: 20141002
  Serious: No
  Sender: FDA-Public Use
  Company Number: US-PFIZER INC-2014078931

PATIENT
  Age: 75 Year
  Sex: Female
  Weight: 66.21 kg

DRUGS (3)
  1. LYRICA [Suspect]
     Indication: PERIPHERAL NERVE INJURY
     Dosage: 100 MG, 2X/DAY
     Dates: end: 2013
  2. LYRICA [Suspect]
     Dosage: 50 MG, 2X/DAY
     Dates: start: 2013
  3. LYRICA [Suspect]
     Dosage: 75 MG, 2X/DAY

REACTIONS (2)
  - Somnolence [Unknown]
  - Insomnia [Unknown]
